FAERS Safety Report 4927508-4 (Version None)
Quarter: 2006Q1

REPORT INFORMATION
  Report Type: 
  Country: None (occurrence: None)
  Receive Date: 20060228
  Receipt Date: 20050817
  Transmission Date: 20060701
  Serious: Yes (Hospitalization, Disabling, Other)
  Sender: FDA-Public Use
  Company Number: US-MERCK-0508USA03279

PATIENT
  Age: 78 Year
  Sex: Male
  Weight: 91 kg

DRUGS (2)
  1. VIOXX [Suspect]
     Indication: ARTHRALGIA
     Route: 048
     Dates: start: 20020101, end: 20030301
  2. VIOXX [Suspect]
     Indication: OSTEOARTHRITIS
     Route: 048
     Dates: start: 20020101, end: 20030301

REACTIONS (14)
  - ADVERSE EVENT [None]
  - ARTHROPATHY [None]
  - CARDIAC ARREST [None]
  - CARDIAC DISORDER [None]
  - CARDIOVASCULAR DISORDER [None]
  - DEEP VEIN THROMBOSIS [None]
  - DEPRESSION [None]
  - DIZZINESS [None]
  - INJURY [None]
  - INSOMNIA [None]
  - LUNG DISORDER [None]
  - MULTI-ORGAN DISORDER [None]
  - MYOCARDIAL INFARCTION [None]
  - POST-TRAUMATIC STRESS DISORDER [None]
